FAERS Safety Report 15958792 (Version 3)
Quarter: 2019Q2

REPORT INFORMATION
  Report Type: Report from Study
  Country: None (occurrence: GB)
  Receive Date: 20190213
  Receipt Date: 20190412
  Transmission Date: 20190711
  Serious: Yes (Hospitalization, Other)
  Sender: FDA-Public Use
  Company Number: GB-ABBVIE-19K-167-2638145-00

PATIENT
  Age: 69 Year
  Sex: Male

DRUGS (1)
  1. HUMIRA [Suspect]
     Active Substance: ADALIMUMAB
     Indication: COLITIS ULCERATIVE
     Route: 058
     Dates: end: 201810

REACTIONS (4)
  - Colitis ulcerative [Not Recovered/Not Resolved]
  - Post procedural complication [Not Recovered/Not Resolved]
  - Prostatic operation [Not Recovered/Not Resolved]
  - Post procedural sepsis [Not Recovered/Not Resolved]

NARRATIVE: CASE EVENT DATE: 20181204
